FAERS Safety Report 20677708 (Version 1)
Quarter: 2022Q2

REPORT INFORMATION
  Report Type: Spontaneous
  Country: IT (occurrence: IT)
  Receive Date: 20220406
  Receipt Date: 20220406
  Transmission Date: 20220721
  Serious: Yes (Hospitalization)
  Sender: FDA-Public Use
  Company Number: IT-ALKEM LABORATORIES LIMITED-IT-ALKEM-2022-01746

PATIENT

DRUGS (3)
  1. ACETAMINOPHEN [Suspect]
     Active Substance: ACETAMINOPHEN
     Indication: Patent ductus arteriosus
     Dosage: UNK
     Route: 065
  2. IBUPROFEN [Suspect]
     Active Substance: IBUPROFEN
     Indication: Product used for unknown indication
     Dosage: 10 MILLIGRAM/KILOGRAM
     Route: 042
  3. IBUPROFEN [Suspect]
     Active Substance: IBUPROFEN
     Dosage: 5 MILLIGRAM/KILOGRAM
     Route: 042

REACTIONS (2)
  - Drug ineffective [Unknown]
  - Treatment failure [Unknown]
